FAERS Safety Report 16244342 (Version 1)
Quarter: 2019Q2

REPORT INFORMATION
  Report Type: Report from Study
  Country: US (occurrence: US)
  Receive Date: 20190426
  Receipt Date: 20190426
  Transmission Date: 20190711
  Serious: Yes (Hospitalization)
  Sender: FDA-Public Use
  Company Number: US-TAIHO ONCOLOGY  INC-EU-2019-01278

PATIENT
  Age: 83 Year
  Sex: Male
  Weight: 61.29 kg

DRUGS (2)
  1. LONSURF [Suspect]
     Active Substance: TIPIRACIL HYDROCHLORIDE\TRIFLURIDINE
     Indication: COLON CANCER
     Dosage: START DATE:  6 TO 7 MONTHS AGO (EXACT DATE UNKNOWN TO PATIENT); DOSAGE:  UNKNOWN (3 PINKISH TABLETS)
     Route: 048
     Dates: start: 2018, end: 201904
  2. INSULIN [Concomitant]
     Active Substance: INSULIN NOS
     Dosage: NI

REACTIONS (2)
  - White blood cell count decreased [Unknown]
  - Blood iron decreased [Unknown]

NARRATIVE: CASE EVENT DATE: 201904
